FAERS Safety Report 17608951 (Version 1)
Quarter: 2020Q2

REPORT INFORMATION
  Report Type: Spontaneous
  Country: US (occurrence: US)
  Receive Date: 20200401
  Receipt Date: 20200401
  Transmission Date: 20200713
  Serious: Yes (Other)
  Sender: FDA-Public Use
  Company Number: US-SA-2020SA079538

PATIENT
  Age: 14 Year
  Sex: Male
  Weight: 35.37 kg

DRUGS (9)
  1. SODIUM CHLORIDE. [Concomitant]
     Active Substance: SODIUM CHLORIDE
  2. ACETAMINOPHEN. [Concomitant]
     Active Substance: ACETAMINOPHEN
  3. DIPHENHYDRAMINE. [Concomitant]
     Active Substance: DIPHENHYDRAMINE
  4. NORMAL SALINE [Concomitant]
     Active Substance: SODIUM CHLORIDE
  5. FABRAZYME [Suspect]
     Active Substance: AGALSIDASE BETA
     Indication: FABRY^S DISEASE
     Dosage: 35 MG, QOW
     Route: 041
     Dates: start: 20190204
  6. STERILE WATER [Concomitant]
     Active Substance: WATER
  7. EPINEPHRINE. [Concomitant]
     Active Substance: EPINEPHRINE
  8. LMX [LIDOCAINE] [Concomitant]
  9. FLUCELVAX NOS [Concomitant]
     Active Substance: INFLUENZA A VIRUS A/BRISBANE/10/2010 (H1N1) ANTIGEN (MDCK CELL DERIVED, PROPIOLACTONE INACTIVATED)\INFLUENZA A VIRUS A/VICTORIA/361/2011 IVR-165 (H3N2) ANTIGEN (MDCK CELL DERIVED, PROPIOLACTONE INACTIVATED)\INFLUENZA B VIRUS B/WISCONSIN/1/2010) ANTIGEN (MDCK CELL DERIVED, PROPIOLACTONE INACTIVATED)

REACTIONS (1)
  - Gastric infection [Unknown]
